FAERS Safety Report 22762959 (Version 6)
Quarter: 2023Q4

REPORT INFORMATION
  Report Type: Spontaneous
  Country: GB (occurrence: GB)
  Receive Date: 20230729
  Receipt Date: 20231204
  Transmission Date: 20240109
  Serious: Yes (Hospitalization)
  Sender: FDA-Public Use
  Company Number: GB-002147023-NVSC2023GB150040

PATIENT
  Age: 76 Year
  Sex: Male
  Weight: 148.3 kg

DRUGS (20)
  1. ABIRATERONE [Suspect]
     Active Substance: ABIRATERONE
     Indication: Prostate cancer metastatic
     Dosage: 1000 MG, ONCE/SINGLE
     Route: 048
     Dates: start: 20220422
  2. ABIRATERONE [Suspect]
     Active Substance: ABIRATERONE
     Indication: Hormone-refractory prostate cancer
  3. ABIRATERONE [Suspect]
     Active Substance: ABIRATERONE
  4. AMLODIPINE [Concomitant]
     Active Substance: AMLODIPINE BESYLATE
     Indication: Hypertension
     Dosage: 5 MG
     Route: 065
  5. AMLODIPINE [Concomitant]
     Active Substance: AMLODIPINE BESYLATE
     Dosage: 10 MG
     Route: 065
     Dates: start: 20230519
  6. SERTRALINE [Concomitant]
     Active Substance: SERTRALINE HYDROCHLORIDE
     Indication: Depression
     Dosage: 50 MG
     Route: 065
     Dates: start: 202305
  7. SERTRALINE [Concomitant]
     Active Substance: SERTRALINE HYDROCHLORIDE
     Indication: Depression
     Dosage: 50 MG
     Route: 065
     Dates: start: 202305
  8. CANDESARTAN [Concomitant]
     Active Substance: CANDESARTAN
     Indication: Hypertension
     Dosage: 4 MG
     Route: 065
  9. CANDESARTAN [Concomitant]
     Active Substance: CANDESARTAN
     Dosage: 16 MG
     Route: 065
  10. CANDESARTAN [Concomitant]
     Active Substance: CANDESARTAN
     Dosage: 2 MG
     Route: 065
     Dates: start: 2020
  11. CANDESARTAN [Concomitant]
     Active Substance: CANDESARTAN
     Dosage: 8 MG
     Route: 065
  12. CANDESARTAN [Concomitant]
     Active Substance: CANDESARTAN
     Dosage: 32 MG
     Route: 065
  13. APIXABAN [Concomitant]
     Active Substance: APIXABAN
     Indication: Atrial fibrillation
     Dosage: 5 MG
     Route: 065
     Dates: start: 20230211
  14. APIXABAN [Concomitant]
     Active Substance: APIXABAN
     Dosage: 2.5 MG
     Route: 065
  15. COCODAMOL [Concomitant]
     Active Substance: ACETAMINOPHEN\CODEINE PHOSPHATE
     Indication: Arthritis
     Dosage: UNK
     Route: 065
     Dates: start: 20191011
  16. COCODAMOL [Concomitant]
     Active Substance: ACETAMINOPHEN\CODEINE PHOSPHATE
     Indication: Back pain
  17. METFORMIN [Concomitant]
     Active Substance: METFORMIN HYDROCHLORIDE
     Indication: Hyperglycaemia
     Dosage: UNK
     Route: 065
     Dates: start: 20230321
  18. VITAMIN D [Concomitant]
     Active Substance: VITAMIN D NOS
     Indication: Prophylaxis
     Dosage: UNK
     Route: 065
     Dates: start: 20230221
  19. GOSERELIN [Concomitant]
     Active Substance: GOSERELIN
     Indication: Prostate cancer metastatic
     Dosage: UNK
     Route: 065
     Dates: start: 201207
  20. CHOLECALCIFEROL [Concomitant]
     Active Substance: CHOLECALCIFEROL
     Indication: Prophylaxis
     Dates: start: 20230221

REACTIONS (2)
  - Road traffic accident [Unknown]
  - Rib fracture [Recovering/Resolving]

NARRATIVE: CASE EVENT DATE: 20230630
